FAERS Safety Report 6651651-5 (Version None)
Quarter: 2010Q1

REPORT INFORMATION
  Report Type: 
  Country: None (occurrence: None)
  Receive Date: 20100325
  Receipt Date: 20100317
  Transmission Date: 20100710
  Serious: Yes (Other)
  Sender: FDA-Public Use
  Company Number: US-AMGEN-QUU390518

PATIENT
  Sex: Male
  Weight: 115.8 kg

DRUGS (6)
  1. NPLATE [Suspect]
     Indication: IDIOPATHIC THROMBOCYTOPENIC PURPURA
     Dates: start: 20090731, end: 20091221
  2. NEUPOGEN [Suspect]
     Indication: DRUG USE FOR UNKNOWN INDICATION
  3. PLATELETS [Concomitant]
     Dates: start: 20080601
  4. BENDAMUSTINE [Concomitant]
     Dates: start: 20090413, end: 20100211
  5. NEUPOGEN [Concomitant]
     Dates: start: 20090504
  6. NEULASTA [Concomitant]
     Dates: start: 20090415, end: 20091116

REACTIONS (1)
  - THERAPEUTIC RESPONSE DECREASED [None]
